FAERS Safety Report 26185783 (Version 1)
Quarter: 2025Q4

REPORT INFORMATION
  Report Type: Spontaneous
  Country: US (occurrence: None)
  Receive Date: 20251219
  Receipt Date: 20251219
  Transmission Date: 20260117
  Serious: Yes (unspecified)
  Sender: FDA-CTU
  Company Number: None

PATIENT
  Age: 75 Year
  Sex: Female
  Weight: 75.3 kg

DRUGS (1)
  1. TALVEY [Suspect]
     Active Substance: TALQUETAMAB-TGVS
     Indication: Plasma cell myeloma
     Dosage: OTHER FREQUENCY : ONCE;
     Route: 058

REACTIONS (4)
  - Immune effector cell-associated neurotoxicity syndrome [None]
  - Metastases to meninges [None]
  - Central nervous system infection [None]
  - Noninfective encephalitis [None]

NARRATIVE: CASE EVENT DATE: 20251214
